FAERS Safety Report 7040948-5 (Version None)
Quarter: 2010Q4

REPORT INFORMATION
  Report Type: 
  Country: None (occurrence: None)
  Receive Date: 20101013
  Receipt Date: 20101005
  Transmission Date: 20110411
  Serious: Yes (Other)
  Sender: FDA-Public Use
  Company Number: SE-US-EMD SERONO, INC.-7006105

PATIENT
  Sex: Female

DRUGS (3)
  1. OVITRELLE [Suspect]
     Indication: IN VITRO FERTILISATION
     Dates: start: 20100517
  2. SYNAREL [Concomitant]
     Indication: IN VITRO FERTILISATION
     Route: 045
     Dates: start: 20100417
  3. PUREGON [Concomitant]

REACTIONS (6)
  - ABORTION SPONTANEOUS [None]
  - DRUG INEFFECTIVE [None]
  - HORMONE LEVEL ABNORMAL [None]
  - INCORRECT STORAGE OF DRUG [None]
  - NAUSEA [None]
  - PAIN [None]
